FAERS Safety Report 25690740 (Version 4)
Quarter: 2025Q4

REPORT INFORMATION
  Report Type: Spontaneous
  Country: AR (occurrence: AR)
  Receive Date: 20250818
  Receipt Date: 20251016
  Transmission Date: 20260117
  Serious: No
  Sender: PFIZER
  Company Number: AR-PFIZER INC-202500160257

PATIENT
  Age: 9 Year
  Sex: Male

DRUGS (1)
  1. GENOTROPIN [Suspect]
     Active Substance: SOMATROPIN
     Indication: Short stature
     Dosage: 0.8 MG, 6 TIMES PER WEEK
     Dates: start: 20240508

REACTIONS (1)
  - Device mechanical issue [Not Recovered/Not Resolved]

NARRATIVE: CASE EVENT DATE: 20250802
